FAERS Safety Report 7461053-X (Version None)
Quarter: 2011Q2

REPORT INFORMATION
  Report Type: 
  Country: None (occurrence: None)
  Receive Date: 20110505
  Receipt Date: 20110502
  Transmission Date: 20111010
  Serious: Yes (Hospitalization)
  Sender: FDA-Public Use
  Company Number: US-GILEAD-2011-0036762

PATIENT
  Sex: Female

DRUGS (6)
  1. LETAIRIS [Suspect]
     Indication: PULMONARY HYPERTENSION
     Route: 048
     Dates: start: 20101006, end: 20110315
  2. LETAIRIS [Suspect]
     Indication: CHRONIC OBSTRUCTIVE PULMONARY DISEASE
  3. LETAIRIS [Suspect]
     Indication: HYPOXIA
  4. LETAIRIS [Suspect]
     Indication: LUNG DISORDER
  5. LETAIRIS [Suspect]
  6. LETAIRIS [Suspect]
     Indication: CARDIOMYOPATHY

REACTIONS (7)
  - TINNITUS [None]
  - OEDEMA PERIPHERAL [None]
  - CELLULITIS [None]
  - EAR PAIN [None]
  - EAR DISCOMFORT [None]
  - NASAL CONGESTION [None]
  - SINUSITIS [None]
